FAERS Safety Report 15971520 (Version 1)
Quarter: 2019Q1

REPORT INFORMATION
  Report Type: Spontaneous
  Country: US (occurrence: US)
  Receive Date: 20190215
  Receipt Date: 20190215
  Transmission Date: 20190418
  Serious: Yes (Hospitalization, Other)
  Sender: FDA-Public Use
  Company Number: US-AMAG PHARMACEUTICALS, INC.-AMAG201802329

PATIENT

DRUGS (4)
  1. MAKENA [Suspect]
     Active Substance: HYDROXYPROGESTERONE CAPROATE
     Dosage: 250 MG/ML, WEEKLY
     Route: 030
     Dates: start: 20180125
  2. MAKENA [Suspect]
     Active Substance: HYDROXYPROGESTERONE CAPROATE
     Indication: PREMATURE LABOUR
     Dosage: 250 MG/ML, WEEKLY
     Route: 030
     Dates: start: 20180125
  3. COLACE [Concomitant]
     Active Substance: DOCUSATE SODIUM
     Indication: CONSTIPATION
     Dosage: 300 MG, QD
     Route: 048
     Dates: start: 20180401
  4. PRENATAL [Concomitant]
     Active Substance: VITAMINS
     Indication: PRENATAL CARE
     Dosage: 1 UNK, UNK
     Route: 048

REACTIONS (2)
  - Premature labour [Recovered/Resolved]
  - Cervical incompetence [Not Recovered/Not Resolved]

NARRATIVE: CASE EVENT DATE: 20180322
